FAERS Safety Report 23309595 (Version 2)
Quarter: 2024Q1

REPORT INFORMATION
  Report Type: Report from Study
  Country: GB (occurrence: GB)
  Receive Date: 20231218
  Receipt Date: 20240310
  Transmission Date: 20240410
  Serious: Yes (Hospitalization)
  Sender: FDA-Public Use
  Company Number: GB-002147023-NVSC2023GB136222

PATIENT
  Sex: Female

DRUGS (1)
  1. OMNITROPE [Suspect]
     Active Substance: SOMATROPIN
     Indication: Hyperpituitarism
     Dosage: 0.60 MG, QD
     Route: 058
     Dates: start: 20230427

REACTIONS (3)
  - Localised infection [Unknown]
  - Product dose omission issue [Unknown]
  - Incorrect dose administered by device [Unknown]
